FAERS Safety Report 23297409 (Version 1)
Quarter: 2023Q4

REPORT INFORMATION
  Report Type: Other
  Country: JP (occurrence: JP)
  Receive Date: 20231214
  Receipt Date: 20231214
  Transmission Date: 20240109
  Serious: Yes (Hospitalization, Other)
  Sender: FDA-Public Use
  Company Number: JP-Merck Healthcare KGaA-2023492541

PATIENT
  Age: 31 Year
  Sex: Female

DRUGS (2)
  1. OVIDREL [Suspect]
     Active Substance: CHORIOGONADOTROPIN ALFA
     Indication: Ovulation induction
     Route: 058
  2. LETROZOLE [Concomitant]
     Active Substance: LETROZOLE
     Indication: Controlled ovarian stimulation

REACTIONS (3)
  - Abortion missed [Recovered/Resolved]
  - Adnexal torsion [Recovered/Resolved]
  - Ovarian hyperstimulation syndrome [Unknown]
